FAERS Safety Report 5787830-9 (Version None)
Quarter: 2008Q2

REPORT INFORMATION
  Report Type: 
  Country: None (occurrence: None)
  Receive Date: 20080625
  Receipt Date: 20080625
  Transmission Date: 20081010
  Serious: Yes (Hospitalization)
  Sender: FDA-Public Use
  Company Number: PHHO2000RU10890

PATIENT
  Sex: Male
  Weight: 95 kg

DRUGS (1)
  1. DIOVAN T30230+CAPS+HY [Suspect]
     Indication: ESSENTIAL HYPERTENSION
     Dosage: 160MG
     Dates: start: 20000925, end: 20001217

REACTIONS (3)
  - CORONARY ARTERY DISEASE [None]
  - ELECTROCARDIOGRAM CHANGE [None]
  - NASOPHARYNGITIS [None]
